FAERS Safety Report 5406533-3 (Version None)
Quarter: 2007Q3

REPORT INFORMATION
  Report Type: 
  Country: None (occurrence: None)
  Receive Date: 20070806
  Receipt Date: 20070730
  Transmission Date: 20080115
  Serious: Yes (Death, Other)
  Sender: FDA-Public Use
  Company Number: AU-PFIZER INC-2007048805

PATIENT
  Sex: Female
  Weight: 70 kg

DRUGS (6)
  1. SUTENT [Suspect]
     Indication: RENAL CELL CARCINOMA STAGE UNSPECIFIED
     Route: 048
     Dates: start: 20070301, end: 20070523
  2. NEXIUM [Concomitant]
  3. MAXOLON [Concomitant]
  4. DURAGESIC-100 [Concomitant]
  5. SERENACE [Concomitant]
  6. TEMAZEPAM [Concomitant]

REACTIONS (8)
  - ANKLE FRACTURE [None]
  - DIARRHOEA [None]
  - DISEASE PROGRESSION [None]
  - FALL [None]
  - FATIGUE [None]
  - NAUSEA [None]
  - RENAL CELL CARCINOMA STAGE UNSPECIFIED [None]
  - SKIN DISCOLOURATION [None]
